FAERS Safety Report 11642872 (Version 1)
Quarter: 2015Q4

REPORT INFORMATION
  Report Type: Spontaneous
  Country: US (occurrence: US)
  Receive Date: 20151020
  Receipt Date: 20151020
  Transmission Date: 20160304
  Serious: Yes (Hospitalization, Other)
  Sender: FDA-Public Use
  Company Number: US-GLENMARK PHARMACEUTICALS EUROPE LIMITED-2015GMK020132

PATIENT
  Age: 36 Year
  Sex: Male

DRUGS (1)
  1. LAMOTRIGINE. [Suspect]
     Active Substance: LAMOTRIGINE
     Indication: PRODUCT USED FOR UNKNOWN INDICATION
     Dosage: 13.5 G, UNK
     Route: 048

REACTIONS (3)
  - Intentional overdose [Unknown]
  - Electrocardiogram QRS complex prolonged [Recovered/Resolved]
  - Suicide attempt [Unknown]
